FAERS Safety Report 15490153 (Version 1)
Quarter: 2018Q4

REPORT INFORMATION
  Report Type: Spontaneous
  Country: FR (occurrence: FR)
  Receive Date: 20181011
  Receipt Date: 20181011
  Transmission Date: 20190205
  Serious: Yes (Death, Hospitalization, Other)
  Sender: FDA-Public Use
  Company Number: FR-BAYER-2018-184888

PATIENT
  Age: 71 Year
  Sex: Male

DRUGS (6)
  1. NEXAVAR [Suspect]
     Active Substance: SORAFENIB
     Indication: HEPATOCELLULAR CARCINOMA
     Dosage: 800 MG, QD
     Dates: start: 201608, end: 201608
  2. NEXAVAR [Suspect]
     Active Substance: SORAFENIB
     Indication: HEPATOCELLULAR CARCINOMA
     Dosage: DAILY DOSE 600 MG
     Dates: start: 201609
  3. STIVARGA [Suspect]
     Active Substance: REGORAFENIB
     Indication: HEPATOCELLULAR CARCINOMA
     Dosage: DAILY DOSE 80 MG
     Dates: start: 201701, end: 2017
  4. STIVARGA [Suspect]
     Active Substance: REGORAFENIB
     Indication: HEPATOCELLULAR CARCINOMA
     Dosage: DAILY DOSE 120 MG
     Dates: start: 2017, end: 2017
  5. STIVARGA [Suspect]
     Active Substance: REGORAFENIB
     Indication: HEPATOCELLULAR CARCINOMA
     Dosage: DAILY DOSE 160 MG
     Dates: start: 2017
  6. NEXAVAR [Suspect]
     Active Substance: SORAFENIB
     Indication: HEPATOCELLULAR CARCINOMA
     Dosage: DAILY DOSE 800 MG

REACTIONS (11)
  - Hepatocellular carcinoma [None]
  - Cardiopulmonary failure [None]
  - Palmar-plantar erythrodysaesthesia syndrome [Recovered/Resolved]
  - Death [Fatal]
  - Hepatic encephalopathy [None]
  - Ascites [None]
  - Jaundice [None]
  - Hepatocellular carcinoma [None]
  - General physical condition abnormal [None]
  - Diarrhoea [Recovered/Resolved]
  - Lung disorder [None]

NARRATIVE: CASE EVENT DATE: 201608
